FAERS Safety Report 7095911-5 (Version None)
Quarter: 2010Q4

REPORT INFORMATION
  Report Type: 
  Country: None (occurrence: None)
  Receive Date: 20101109
  Receipt Date: 20101109
  Transmission Date: 20110411
  Serious: Yes (Hospitalization)
  Sender: FDA-Public Use
  Company Number: None

PATIENT
  Age: 88 Year
  Sex: Female

DRUGS (15)
  1. CLONIDINE [Suspect]
     Indication: HYPERTENSION
     Dosage: 0.3MG BID PO
     Route: 048
  2. AMLODIPINE [Suspect]
     Indication: HYPERTENSION
     Dosage: 10MG DAILY PO
     Route: 048
  3. FOLIC ACID [Concomitant]
  4. MIRAPEX [Concomitant]
  5. DESYREL [Concomitant]
  6. PROTONIX [Concomitant]
  7. ASPIRIN [Concomitant]
  8. XANAX [Concomitant]
  9. INDERRAL LA [Concomitant]
  10. COZAAR [Concomitant]
  11. CELEX [Concomitant]
  12. VIT D [Concomitant]
  13. COUMADIN [Concomitant]
  14. APAP TAB [Concomitant]
  15. POTASSIUM CHLORIDE [Concomitant]

REACTIONS (3)
  - BRADYCARDIA [None]
  - HYPOTENSION [None]
  - SYNCOPE [None]
